FAERS Safety Report 26189127 (Version 1)
Quarter: 2025Q4

REPORT INFORMATION
  Report Type: Spontaneous
  Country: US (occurrence: US)
  Receive Date: 20251223
  Receipt Date: 20251223
  Transmission Date: 20260118
  Serious: No
  Sender: AUROBINDO
  Company Number: US-AUROBINDO-AUR-APL-2025-055636

PATIENT
  Age: 95 Year
  Sex: Male
  Weight: 48.5 kg

DRUGS (3)
  1. AMOXICILLIN [Suspect]
     Active Substance: AMOXICILLIN
     Indication: Ear infection
     Dosage: 2 DOSAGE FORM, DAILY
     Route: 061
  2. NPLATE [Concomitant]
     Active Substance: ROMIPLOSTIM
     Indication: Haemorrhage
     Dosage: UNK, EVERY WEEK
     Route: 065
  3. NPLATE [Concomitant]
     Active Substance: ROMIPLOSTIM
     Indication: Immune thrombocytopenia

REACTIONS (2)
  - Gastrooesophageal reflux disease [Not Recovered/Not Resolved]
  - Oral discomfort [Not Recovered/Not Resolved]

NARRATIVE: CASE EVENT DATE: 20251001
